FAERS Safety Report 6248100-8 (Version None)
Quarter: 2009Q2

REPORT INFORMATION
  Report Type: 
  Country: None (occurrence: None)
  Receive Date: 20090624
  Receipt Date: 20090624
  Transmission Date: 20091009
  Serious: Yes (Hospitalization, Other)
  Sender: FDA-Public Use
  Company Number: None

PATIENT
  Age: 7 Year
  Sex: Female
  Weight: 30.5 kg

DRUGS (1)
  1. CEPHALEXIN MONOHYDRATE [Suspect]
     Indication: URINARY TRACT INFECTION
     Dosage: 250/5ML 10ML ORALLY TWICE DAILY 10 DAYS
     Route: 048
     Dates: start: 20090410, end: 20090419

REACTIONS (4)
  - BONE PAIN [None]
  - DRUG INEFFECTIVE [None]
  - MYALGIA [None]
  - PAIN OF SKIN [None]
